FAERS Safety Report 17112856 (Version 1)
Quarter: 2019Q4

REPORT INFORMATION
  Report Type: Spontaneous
  Country: DK (occurrence: DK)
  Receive Date: 20191204
  Receipt Date: 20191204
  Transmission Date: 20200122
  Serious: Yes (Other)
  Sender: FDA-Public Use
  Company Number: NVSC2019DK058113

PATIENT
  Age: 71 Year
  Sex: Male

DRUGS (2)
  1. TERBINAFINE HYDROCHLORIDE. [Suspect]
     Active Substance: TERBINAFINE HYDROCHLORIDE
     Indication: TRICHOPHYTOSIS
     Dosage: UNK
     Route: 061
     Dates: start: 2009
  2. TERBINAFINE. [Suspect]
     Active Substance: TERBINAFINE
     Indication: TRICHOPHYTOSIS
     Dosage: UNK, 2 COURSES
     Route: 048
     Dates: start: 2008

REACTIONS (2)
  - Drug ineffective [Unknown]
  - Pathogen resistance [Unknown]
